FAERS Safety Report 15464091 (Version 1)
Quarter: 2018Q4

REPORT INFORMATION
  Report Type: Spontaneous
  Country: JP (occurrence: JP)
  Receive Date: 20181004
  Receipt Date: 20181004
  Transmission Date: 20190204
  Serious: Yes (Hospitalization)
  Sender: FDA-Public Use
  Company Number: JP-TEVA-2018-JP-003117J

PATIENT
  Age: 78 Year
  Sex: Male

DRUGS (4)
  1. GLIBENCLAMIDE TABLET 2.5MG TAIYO [Suspect]
     Active Substance: GLYBURIDE
     Indication: DIABETES MELLITUS
     Route: 048
     Dates: start: 20180401, end: 20180401
  2. TRAZENTA [Concomitant]
     Active Substance: LINAGLIPTIN
     Dosage: 5 MILLIGRAM DAILY;
     Route: 048
     Dates: start: 2018
  3. GLIBENCLAMIDE TABLET 2.5MG TAIYO [Suspect]
     Active Substance: GLYBURIDE
     Route: 048
     Dates: start: 20180404
  4. EUGLUCON [Concomitant]
     Active Substance: GLYBURIDE
     Indication: DIABETES MELLITUS
     Route: 048
     Dates: start: 20180402, end: 20180403

REACTIONS (2)
  - Product substitution issue [Unknown]
  - Dysstasia [Recovered/Resolved]

NARRATIVE: CASE EVENT DATE: 20180401
